FAERS Safety Report 7951891-9 (Version None)
Quarter: 2011Q4

REPORT INFORMATION
  Report Type: 
  Country: None (occurrence: None)
  Receive Date: 20111201
  Receipt Date: 20111201
  Transmission Date: 20120403
  Serious: Yes (Other)
  Sender: FDA-Public Use
  Company Number: None

PATIENT
  Sex: Female

DRUGS (2)
  1. RIBAVIRIN [Concomitant]
     Indication: HEPATITIS C
     Dosage: 400MG
     Route: 048
     Dates: start: 20110222, end: 20111130
  2. INCIVEK [Suspect]
     Indication: HEPATITIS C
     Dosage: 750MG
     Route: 048
     Dates: start: 20110923, end: 20111130

REACTIONS (2)
  - PRURITUS [None]
  - RASH [None]
